FAERS Safety Report 8622992-7 (Version None)
Quarter: 2012Q3

REPORT INFORMATION
  Report Type: 
  Country: None (occurrence: None)
  Receive Date: 20120827
  Receipt Date: 20120824
  Transmission Date: 20120928
  Serious: Yes (Death, Other)
  Sender: FDA-Public Use
  Company Number: PHFR2012GB001856

PATIENT
  Sex: Female
  Weight: 81 kg

DRUGS (8)
  1. CLOZARIL [Suspect]
     Dosage: 360 MG, (160 MG MANE AND 200 MG NOCTE)
  2. ACETAMINOPHEN/HYDROCODONE BITARTRATE [Concomitant]
     Indication: PAIN
     Dosage: UNK UKN, UNK
     Route: 048
  3. FLUTICASONE PROPIONATE/SALMETEROL [Concomitant]
     Indication: ASTHMA
     Dosage: UNK UKN, BID
  4. ALBUTEROL SULATE [Concomitant]
     Indication: ASTHMA
     Dosage: UNK UKN, PRN
  5. LANSOPRAZOLE [Concomitant]
     Indication: DYSKINESIA
     Dosage: 30 MG, UNK
     Route: 048
  6. ESCITALOPRAM [Concomitant]
     Dosage: 10 MG, UNK
     Route: 048
  7. CLOZARIL [Suspect]
     Indication: SCHIZOPHRENIA, PARANOID TYPE
     Dosage: UNK UKN, UNK
     Route: 048
     Dates: start: 19931130
  8. PROCYCLIDINE HYDROCHLORIDE 2MG TAB [Concomitant]
     Dosage: 5 MG, TID

REACTIONS (4)
  - MALIGNANT GLIOMA [None]
  - CHRONIC OBSTRUCTIVE PULMONARY DISEASE [None]
  - RESPIRATORY FAILURE [None]
  - PNEUMONIA [None]
